FAERS Safety Report 10528059 (Version 7)
Quarter: 2019Q2

REPORT INFORMATION
  Report Type: Spontaneous
  Country: GB (occurrence: GB)
  Receive Date: 20141020
  Receipt Date: 20190419
  Transmission Date: 20190711
  Serious: Yes (Life-Threatening, Hospitalization, Congenital Anomaly, Other)
  Sender: FDA-Public Use
  Company Number: PHHY2014GB136022

PATIENT
  Age: 18 Month
  Sex: Female
  Weight: 2.27 kg

DRUGS (9)
  1. FLUOXETINE [Concomitant]
     Active Substance: FLUOXETINE HYDROCHLORIDE
     Indication: FOETAL EXPOSURE DURING PREGNANCY
     Route: 064
  2. PARACETAMOL [Suspect]
     Active Substance: ACETAMINOPHEN
     Indication: FOETAL EXPOSURE DURING PREGNANCY
     Dosage: UNK
     Route: 064
  3. METRONIDAZOLE. [Concomitant]
     Active Substance: METRONIDAZOLE
     Indication: FOETAL EXPOSURE DURING PREGNANCY
     Dosage: UNK
     Route: 064
  4. COCODAMOL [Suspect]
     Active Substance: ACETAMINOPHEN\CODEINE PHOSPHATE
     Dosage: MATERNAL DOSE: UNK, 4X/DAY (QID)
     Route: 064
  5. CEFRADINE [Concomitant]
     Active Substance: CEPHRADINE
     Indication: FOETAL EXPOSURE DURING PREGNANCY
     Route: 064
  6. PARACETAMOL [Suspect]
     Active Substance: ACETAMINOPHEN
     Dosage: UNK
     Route: 064
  7. PARACETAMOL [Suspect]
     Active Substance: ACETAMINOPHEN
     Dosage: (MATERNAL DOSE: UP TO FOUR TIMES A DAY)
     Route: 064
  8. ENOXAPARIN [Concomitant]
     Active Substance: ENOXAPARIN
     Indication: FOETAL EXPOSURE DURING PREGNANCY
     Dosage: UNK
     Route: 064
  9. COCODAMOL [Suspect]
     Active Substance: ACETAMINOPHEN\CODEINE PHOSPHATE
     Indication: FOETAL EXPOSURE DURING PREGNANCY
     Dosage: UNK
     Route: 064

REACTIONS (19)
  - Jaundice neonatal [Recovered/Resolved]
  - Foetal exposure during pregnancy [Unknown]
  - Dependence [Recovered/Resolved]
  - Liver function test abnormal [Recovered/Resolved]
  - Foetal monitoring abnormal [Unknown]
  - Foetal arrhythmia [Recovered/Resolved]
  - Drug withdrawal syndrome neonatal [Recovered/Resolved]
  - Hepatotoxicity [Recovered/Resolved]
  - Aphasia [Unknown]
  - Gait inability [Unknown]
  - Premature baby [Unknown]
  - Heart rate irregular [Unknown]
  - Dependence [Unknown]
  - Developmental delay [Not Recovered/Not Resolved]
  - Respiratory distress [Recovered/Resolved]
  - Tremor [Unknown]
  - Hepatic function abnormal [Unknown]
  - Overdose [Unknown]
  - Malaise [Unknown]
